FAERS Safety Report 7818320-7 (Version None)
Quarter: 2011Q4

REPORT INFORMATION
  Report Type: 
  Country: None (occurrence: None)
  Receive Date: 20111017
  Receipt Date: 20111011
  Transmission Date: 20120403
  Serious: Yes (Other)
  Sender: FDA-Public Use
  Company Number: US-PFIZER INC-2006033349

PATIENT
  Sex: Female
  Weight: 68.04 kg

DRUGS (3)
  1. BUSPAR [Suspect]
  2. XANAX [Suspect]
     Indication: PANIC ATTACK
     Dosage: 1 MG, 3X/DAY
     Route: 048
  3. ATIVAN [Suspect]

REACTIONS (24)
  - NERVE INJURY [None]
  - NEURALGIA [None]
  - DEPENDENCE [None]
  - RESPIRATORY DISTRESS [None]
  - DRUG HYPERSENSITIVITY [None]
  - PREMATURE MENOPAUSE [None]
  - DISABILITY [None]
  - BLOOD CHOLESTEROL INCREASED [None]
  - ADVERSE DRUG REACTION [None]
  - TRANSIENT ISCHAEMIC ATTACK [None]
  - PNEUMONIA [None]
  - TRIGEMINAL NEURALGIA [None]
  - JOINT STIFFNESS [None]
  - OSTEOPOROSIS [None]
  - CONVULSION [None]
  - ADVERSE EVENT [None]
  - GASTRITIS [None]
  - BONE PAIN [None]
  - AMNESIA [None]
  - FIBROMYALGIA [None]
  - TOOTH EXTRACTION [None]
  - GASTROOESOPHAGEAL REFLUX DISEASE [None]
  - VISION BLURRED [None]
  - TEMPERATURE REGULATION DISORDER [None]
